FAERS Safety Report 6817941-8 (Version None)
Quarter: 2010Q3

REPORT INFORMATION
  Report Type: 
  Country: None (occurrence: None)
  Receive Date: 20100706
  Receipt Date: 20100625
  Transmission Date: 20110219
  Serious: Yes (Life-Threatening, Hospitalization, Other)
  Sender: FDA-Public Use
  Company Number: DE-BAYER-201030424GPV

PATIENT
  Age: 60 Year
  Sex: Female
  Weight: 95 kg

DRUGS (4)
  1. CIPROFLOXACIN [Suspect]
     Indication: URINARY TRACT INFECTION
     Dosage: UNIT DOSE: 250 MG
     Route: 048
     Dates: start: 20100323, end: 20100329
  2. BENZBROMARON AL [Suspect]
     Indication: PRODUCT USED FOR UNKNOWN INDICATION
     Dosage: UNIT DOSE: 100 MG
     Route: 048
     Dates: start: 20100203, end: 20100222
  3. HYGROTON [Suspect]
     Indication: PRODUCT USED FOR UNKNOWN INDICATION
     Dosage: UNIT DOSE: 25 MG
     Route: 048
     Dates: start: 20100329, end: 20100401
  4. ALLOPURINOL [Concomitant]
     Indication: HYPERURICAEMIA
     Dates: end: 20100203

REACTIONS (1)
  - RENAL FAILURE ACUTE [None]
